FAERS Safety Report 11847484 (Version 1)
Quarter: 2015Q4

REPORT INFORMATION
  Report Type: Spontaneous
  Country: US (occurrence: US)
  Receive Date: 20151217
  Receipt Date: 20151217
  Transmission Date: 20160305
  Serious: Yes (Hospitalization)
  Sender: FDA-Public Use
  Company Number: US-NOVOPROD-473966

PATIENT
  Age: 46 Year
  Sex: Male
  Weight: 77.98 kg

DRUGS (3)
  1. NOVOLOG [Suspect]
     Active Substance: INSULIN ASPART
     Dosage: 0.35 U, PER HOUR STARTING AT 10 PM TO 9AM
     Route: 059
     Dates: start: 1995
  2. NOVOLOG [Suspect]
     Active Substance: INSULIN ASPART
     Dosage: 1 UNIT PER 15 GRAMS OF CARBOHYDRATES (BOLUS)
     Route: 059
     Dates: start: 1995
  3. NOVOLOG [Suspect]
     Active Substance: INSULIN ASPART
     Indication: TYPE 1 DIABETES MELLITUS
     Dosage: 0.85 U, PER HOUR (BASAL)
     Route: 059
     Dates: start: 1995

REACTIONS (3)
  - Haematemesis [Recovered/Resolved]
  - Blood glucose increased [Recovered/Resolved]
  - Product quality issue [Recovered/Resolved]

NARRATIVE: CASE EVENT DATE: 20151205
